FAERS Safety Report 17217326 (Version 1)
Quarter: 2019Q4

REPORT INFORMATION
  Report Type: Spontaneous
  Country: GB (occurrence: GB)
  Receive Date: 20191231
  Receipt Date: 20191231
  Transmission Date: 20200122
  Serious: Yes (Life-Threatening)
  Sender: FDA-Public Use
  Company Number: GB-TEVA-2019-GB-1159475

PATIENT
  Age: 55 Year
  Sex: Male
  Weight: 73 kg

DRUGS (9)
  1. PHENOXYMETHYLPENICILLIN [Suspect]
     Active Substance: PENICILLIN V
     Dosage: 250 MG
     Dates: start: 20191112
  2. THIAMINE. [Concomitant]
     Active Substance: THIAMINE
     Dosage: BEFORE ... (4 DOSAGE FORMS PER DAY)
     Dates: start: 20190403, end: 20191010
  3. SALBUTAMOL [Concomitant]
     Active Substance: ALBUTEROL
     Dosage: ONE OR TWO PUFFS TO BE INHALED FOUR TIMES A DAY...
     Route: 055
     Dates: start: 20180731, end: 20191010
  4. BISOPROLOL [Concomitant]
     Active Substance: BISOPROLOL
     Dosage: 1 DOSAGE FORMS PER DAY
     Dates: start: 20190403, end: 20191010
  5. FOSTAIR [Concomitant]
     Active Substance: BECLOMETHASONE\FORMOTEROL
     Dosage: PUFFS   4 DOSAGE FORMS PER DAY
     Route: 055
     Dates: start: 20190403, end: 20191010
  6. CARBOCISTEINE [Concomitant]
     Active Substance: CARBOCYSTEINE
     Dosage: 6 DOSAGE FORMS PER DAY
     Dates: start: 20190403, end: 20191010
  7. RANITIDINE. [Concomitant]
     Active Substance: RANITIDINE
     Dosage: 2 DOSAGE FORMS PER DAY
     Dates: start: 20181012, end: 20191010
  8. FERROUS SULFATE. [Concomitant]
     Active Substance: FERROUS SULFATE
     Dosage: 2 DOSAGE FORMS PER DAY
     Dates: start: 20190403, end: 20191010
  9. MIRTAZAPINE. [Concomitant]
     Active Substance: MIRTAZAPINE
     Dosage: 1 DOSAGE FORMS DAILY; AT NIGHT
     Dates: start: 20190403, end: 20191010

REACTIONS (1)
  - Rash [Recovered/Resolved]

NARRATIVE: CASE EVENT DATE: 20191112
